FAERS Safety Report 18307490 (Version 4)
Quarter: 2020Q4

REPORT INFORMATION
  Report Type: Spontaneous
  Country: US (occurrence: US)
  Receive Date: 20200924
  Receipt Date: 20201111
  Transmission Date: 20210113
  Serious: Yes (Other)
  Sender: FDA-Public Use
  Company Number: US-SA-2020SA255726

PATIENT

DRUGS (10)
  1. LANTUS [Suspect]
     Active Substance: INSULIN GLARGINE
     Dosage: 5 IU, QD
     Route: 065
  2. HUMALOG [Concomitant]
     Active Substance: INSULIN LISPRO
     Dosage: SLIDING SCALE
     Route: 065
  3. PANTOPRAZOLE [Concomitant]
     Active Substance: PANTOPRAZOLE
     Dosage: ONCE A DAY IN THE MORNING
     Route: 065
  4. MIRAPEX [Concomitant]
     Active Substance: PRAMIPEXOLE DIHYDROCHLORIDE
     Dosage: 2 TABLET AT BED TIME
     Route: 065
  5. CVON D3 6000 [Concomitant]
  6. LANTUS [Suspect]
     Active Substance: INSULIN GLARGINE
     Indication: TYPE 2 DIABETES MELLITUS
     Dosage: 6 IU, QD
     Route: 065
     Dates: start: 2010
  7. CARAFATE [Concomitant]
     Active Substance: SUCRALFATE
     Dosage: 1 MG, QD
     Route: 065
  8. LANTUS [Suspect]
     Active Substance: INSULIN GLARGINE
     Dosage: 5 TO 8 UNITS AS NEEDED
     Route: 065
  9. ALBUTEROL SULFATE. [Concomitant]
     Active Substance: ALBUTEROL SULFATE
     Dosage: UNK
     Route: 055
  10. CELEXA [CELECOXIB] [Concomitant]
     Active Substance: CELECOXIB
     Dosage: ONE AND HALF AT BED TIME
     Route: 065

REACTIONS (5)
  - Poor quality product administered [Unknown]
  - Blood glucose decreased [Unknown]
  - Intentional product use issue [Unknown]
  - Liquid product physical issue [Unknown]
  - Diabetes mellitus inadequate control [Unknown]
